FAERS Safety Report 6124132-5 (Version None)
Quarter: 2009Q1

REPORT INFORMATION
  Report Type: 
  Country: None (occurrence: None)
  Receive Date: 20090319
  Receipt Date: 20090306
  Transmission Date: 20090719
  Serious: Yes (Other)
  Sender: FDA-Public Use
  Company Number: VN-ROCHE-600077

PATIENT

DRUGS (1)
  1. XELODA [Suspect]
     Indication: DRUG USE FOR UNKNOWN INDICATION
     Dosage: 1500MG IN MORNING, 1500MG IN EVENING FOR 2 WEEKS, THEN, RESTED A WEEK AND HAD IN TOTAL EIGHT CYCLES
     Route: 065
     Dates: start: 20080617, end: 20081124

REACTIONS (2)
  - METASTASES TO LIVER [None]
  - RECTAL CANCER RECURRENT [None]
